FAERS Safety Report 20964076 (Version 1)
Quarter: 2022Q2

REPORT INFORMATION
  Report Type: Spontaneous
  Country: US (occurrence: None)
  Receive Date: 20220614
  Receipt Date: 20220614
  Transmission Date: 20220720
  Serious: Yes (unspecified)
  Sender: FDA-Public Use
  Company Number: None

PATIENT
  Age: 44 Year
  Sex: Female
  Weight: 67 kg

DRUGS (2)
  1. BRENTUXIMAB VEDOTIN [Suspect]
     Active Substance: BRENTUXIMAB VEDOTIN
  2. ADCETRIS [Concomitant]
     Active Substance: BRENTUXIMAB VEDOTIN
     Dates: start: 20220519, end: 20220609

REACTIONS (12)
  - Infusion related reaction [None]
  - Cough [None]
  - Heart rate increased [None]
  - Oropharyngeal discomfort [None]
  - Retching [None]
  - Vomiting [None]
  - Dysphonia [None]
  - Flushing [None]
  - Chest discomfort [None]
  - Discomfort [None]
  - Respiratory rate increased [None]
  - Blood pressure diastolic decreased [None]

NARRATIVE: CASE EVENT DATE: 20220519
